FAERS Safety Report 10193388 (Version 1)
Quarter: 2014Q2

REPORT INFORMATION
  Report Type: Spontaneous
  Country: US (occurrence: US)
  Receive Date: 20140524
  Receipt Date: 20140524
  Transmission Date: 20141212
  Serious: No
  Sender: FDA-Public Use
  Company Number: US-SA-2013SA127816

PATIENT
  Age: 52 Year
  Sex: Female

DRUGS (4)
  1. LANTUS [Suspect]
     Dosage: DOSE:60 UNIT(S)
     Route: 051
     Dates: start: 201105
  2. LANTUS [Suspect]
     Dosage: DOSE:27 UNIT(S)
     Route: 051
     Dates: start: 20130829
  3. HUMALOG [Suspect]
     Dosage: DOSE:300 UNIT(S)
     Route: 065
     Dates: start: 201304
  4. NOVOLOG [Suspect]
     Route: 065

REACTIONS (2)
  - Hepatic steatosis [Not Recovered/Not Resolved]
  - Hepatic enzyme increased [Not Recovered/Not Resolved]
